FAERS Safety Report 7120035-8 (Version None)
Quarter: 2010Q4

REPORT INFORMATION
  Report Type: 
  Country: None (occurrence: None)
  Receive Date: 20101123
  Receipt Date: 20101117
  Transmission Date: 20110411
  Serious: Yes (Hospitalization, Other)
  Sender: FDA-Public Use
  Company Number: US-MPIJNJ-2010-05227

PATIENT
  Sex: Female
  Weight: 92 kg

DRUGS (3)
  1. VELCADE [Suspect]
     Indication: MULTIPLE MYELOMA
     Dosage: 1.3 MG/M2, CYCLIC
     Route: 042
     Dates: start: 20100607, end: 20100910
  2. THALIDOMIDE [Suspect]
     Indication: MULTIPLE MYELOMA
     Dosage: 200 MG, CYCLIC
     Route: 048
     Dates: start: 20100607, end: 20100910
  3. DECADRON [Suspect]
     Indication: MULTIPLE MYELOMA

REACTIONS (9)
  - ACUTE RESPIRATORY FAILURE [None]
  - COMPRESSION FRACTURE [None]
  - FLUID OVERLOAD [None]
  - PLEURAL EFFUSION [None]
  - RENAL FAILURE ACUTE [None]
  - SLEEP APNOEA SYNDROME [None]
  - THROMBOCYTOPENIA [None]
  - UROSEPSIS [None]
  - WOUND INFECTION [None]
